FAERS Safety Report 8232007-0 (Version None)
Quarter: 2012Q1

REPORT INFORMATION
  Report Type: 
  Country: None (occurrence: None)
  Receive Date: 20120323
  Receipt Date: 20120310
  Transmission Date: 20120608
  Serious: Yes (Hospitalization)
  Sender: FDA-Public Use
  Company Number: DE-MYLANLABS-2012S1005347

PATIENT
  Age: 40 Year
  Sex: Female
  Weight: 70 kg

DRUGS (6)
  1. AMITRIPTYLINE HCL [Suspect]
     Dosage: UP TO 50 TABLETS
     Route: 048
  2. NALOXONE W/TILIDINE [Suspect]
     Route: 048
  3. PROCORALAN [Suspect]
     Dosage: UP TO 40 TABLETS
     Route: 048
  4. CITALOPRAM HYDROBROMIDE [Suspect]
     Dosage: UP TO 10 TABLETS
     Route: 048
  5. GABAPENTIN [Suspect]
     Dosage: UP TO 20 TABLETS
     Route: 048
  6. GABAPENTIN [Suspect]
     Route: 048

REACTIONS (5)
  - BRADYCARDIA [None]
  - OVERDOSE [None]
  - COMA [None]
  - HYPOTENSION [None]
  - SUICIDE ATTEMPT [None]
